FAERS Safety Report 12552477 (Version 1)
Quarter: 2016Q3

REPORT INFORMATION
  Report Type: Spontaneous
  Country: US (occurrence: US)
  Receive Date: 20160713
  Receipt Date: 20160713
  Transmission Date: 20161109
  Serious: No
  Sender: FDA-Public Use
  Company Number: US-PFIZER INC-2016341459

PATIENT
  Age: 64 Year
  Sex: Female
  Weight: 59 kg

DRUGS (6)
  1. PREMARIN [Suspect]
     Active Substance: ESTROGENS, CONJUGATED
     Indication: PAIN
  2. PREMARIN [Suspect]
     Active Substance: ESTROGENS, CONJUGATED
     Indication: PRURITUS
  3. PREMARIN [Suspect]
     Active Substance: ESTROGENS, CONJUGATED
     Indication: BURNING SENSATION
  4. PREMARIN [Suspect]
     Active Substance: ESTROGENS, CONJUGATED
     Indication: ATROPHIC VULVOVAGINITIS
     Dosage: 1 G, 2X/WEEK
     Route: 067
  5. PREMARIN [Suspect]
     Active Substance: ESTROGENS, CONJUGATED
     Indication: HORMONE THERAPY
     Dosage: 1 G, 1X/DAY FOR 7 DAYS
     Route: 067
     Dates: start: 20160113
  6. ZYRTEC [Concomitant]
     Active Substance: CETIRIZINE HYDROCHLORIDE
     Dosage: UNK

REACTIONS (4)
  - Malaise [Unknown]
  - Activities of daily living impaired [Unknown]
  - Drug ineffective [Recovering/Resolving]
  - Drug effect incomplete [Unknown]

NARRATIVE: CASE EVENT DATE: 201601
